FAERS Safety Report 4880695-9 (Version None)
Quarter: 2006Q1

REPORT INFORMATION
  Report Type: 
  Country: None (occurrence: None)
  Receive Date: 20060113
  Receipt Date: 20050328
  Transmission Date: 20060701
  Serious: Yes (Hospitalization)
  Sender: FDA-Public Use
  Company Number: US-MERCK-0503USA04986

PATIENT
  Age: 65 Year
  Sex: Female
  Weight: 97 kg

DRUGS (2)
  1. VIOXX [Suspect]
     Indication: ARTHRITIS
     Route: 048
     Dates: start: 20000520, end: 20040501
  2. ASPIRIN [Concomitant]
     Route: 048

REACTIONS (5)
  - ANXIETY [None]
  - CHEST PAIN [None]
  - COLON INJURY [None]
  - HERNIA [None]
  - MYOCARDIAL INFARCTION [None]
